FAERS Safety Report 24563486 (Version 1)
Quarter: 2024Q4

REPORT INFORMATION
  Report Type: Spontaneous
  Country: US (occurrence: US)
  Receive Date: 20241030
  Receipt Date: 20241030
  Transmission Date: 20250115
  Serious: No
  Sender: JOHNSON AND JOHNSON
  Company Number: US-JNJFOC-20241075808

PATIENT
  Sex: Female

DRUGS (1)
  1. SPRAVATO [Suspect]
     Active Substance: ESKETAMINE
     Indication: Depression

REACTIONS (9)
  - Adverse reaction [Unknown]
  - Stress [Unknown]
  - Malaise [Unknown]
  - Illness [Unknown]
  - Urinary tract disorder [Unknown]
  - Urethritis noninfective [Unknown]
  - COVID-19 [Unknown]
  - Anxiety [Unknown]
  - Depression [Unknown]
